FAERS Safety Report 9261628 (Version 7)
Quarter: 2015Q3

REPORT INFORMATION
  Report Type: Spontaneous
  Country: US (occurrence: US)
  Receive Date: 20130429
  Receipt Date: 20150924
  Transmission Date: 20151125
  Serious: Yes (Hospitalization, Other)
  Sender: FDA-Public Use
  Company Number: US-009507513-98120252

PATIENT
  Sex: Male

DRUGS (4)
  1. ZESTRIL [Concomitant]
     Active Substance: LISINOPRIL
     Dosage: UNK MG, UNK
     Route: 048
     Dates: start: 199806
  2. FINASTERIDE. [Suspect]
     Active Substance: FINASTERIDE
     Indication: PROSTATOMEGALY
     Dosage: 1.25 MG, QD
     Route: 048
     Dates: start: 20080107, end: 20110928
  3. PROSCAR [Suspect]
     Active Substance: FINASTERIDE
     Indication: PROSTATOMEGALY
     Dosage: 1.25 MG, QD
     Route: 048
     Dates: start: 20060606, end: 20080402
  4. PROPECIA [Suspect]
     Active Substance: FINASTERIDE
     Indication: ALOPECIA
     Dosage: 1 MG, QD
     Route: 048
     Dates: start: 19980307, end: 20000403

REACTIONS (25)
  - Hair transplant [Unknown]
  - Hair transplant [Unknown]
  - Wrong technique in product usage process [Unknown]
  - Pruritus [Not Recovered/Not Resolved]
  - Sexual dysfunction [Not Recovered/Not Resolved]
  - Hernia repair [Unknown]
  - Prostatic disorder [Unknown]
  - Erectile dysfunction [Not Recovered/Not Resolved]
  - Hair transplant [Unknown]
  - Shoulder operation [Unknown]
  - Bladder neck suspension [Unknown]
  - Lymphadenectomy [Unknown]
  - Cardiac ablation [Unknown]
  - Pharyngeal disorder [Unknown]
  - Prostate cancer [Not Recovered/Not Resolved]
  - Atrial fibrillation [Not Recovered/Not Resolved]
  - Mumps [Unknown]
  - Radical prostatectomy [Unknown]
  - Shoulder operation [Unknown]
  - Scar [Unknown]
  - Cardiac ablation [Unknown]
  - Cardiac ablation [Unknown]
  - Pneumonia [Unknown]
  - Hair transplant [Unknown]
  - Hyperlipidaemia [Unknown]

NARRATIVE: CASE EVENT DATE: 199808
